FAERS Safety Report 8420512-3 (Version None)
Quarter: 2012Q2

REPORT INFORMATION
  Report Type: 
  Country: None (occurrence: None)
  Receive Date: 20120608
  Receipt Date: 20120531
  Transmission Date: 20120825
  Serious: Yes (Hospitalization)
  Sender: FDA-Public Use
  Company Number: US-BIOGENIDEC-2012BI010900

PATIENT
  Age: 49 Year
  Sex: Female

DRUGS (1)
  1. TYSABRI [Suspect]
     Indication: MULTIPLE SCLEROSIS
     Route: 042
     Dates: start: 20110518, end: 20120122

REACTIONS (7)
  - CELLULITIS [None]
  - URINARY TRACT INFECTION [None]
  - OPEN WOUND [None]
  - HYPOAESTHESIA [None]
  - SEPSIS [None]
  - MOBILITY DECREASED [None]
  - ASTHENIA [None]
